FAERS Safety Report 7463014-3 (Version None)
Quarter: 2011Q2

REPORT INFORMATION
  Report Type: 
  Country: None (occurrence: None)
  Receive Date: 20110506
  Receipt Date: 20110422
  Transmission Date: 20111010
  Serious: Yes (Other)
  Sender: FDA-Public Use
  Company Number: US-BAYER-2011-023809

PATIENT
  Age: 21 Year
  Sex: Female
  Weight: 97.052 kg

DRUGS (2)
  1. DROSPIRENONE AND ETHINYL ESTRADIOL [Suspect]
     Indication: CONTRACEPTION
     Route: 048
  2. PHENTERMINE [Concomitant]
     Indication: WEIGHT DECREASED

REACTIONS (5)
  - CHOLECYSTECTOMY [None]
  - PAIN [None]
  - GENERAL PHYSICAL HEALTH DETERIORATION [None]
  - INJURY [None]
  - CHOLECYSTITIS [None]
